FAERS Safety Report 5953917-0 (Version None)
Quarter: 2008Q4

REPORT INFORMATION
  Report Type: 
  Country: None (occurrence: None)
  Receive Date: 20081114
  Receipt Date: 20081027
  Transmission Date: 20090506
  Serious: Yes (Other)
  Sender: FDA-Public Use
  Company Number: US-PFIZER INC-2008092765

PATIENT
  Age: 50 Year
  Sex: Female

DRUGS (8)
  1. NELFINAVIR MESILATE [Suspect]
     Indication: HIV INFECTION
  2. RIBAVIRIN [Suspect]
     Indication: HEPATITIS C VIRUS TEST
  3. ALL OTHER THERAPEUTIC PRODUCTS [Suspect]
     Indication: HEPATITIS C VIRUS TEST
  4. STAVUDINE [Suspect]
     Indication: HIV INFECTION
  5. DIDANOSINE [Suspect]
     Indication: HIV INFECTION
  6. LAMIVUDINE [Suspect]
     Indication: HIV INFECTION
  7. ATAZANAVIR SULFATE [Suspect]
     Indication: HIV INFECTION
  8. INDINIVIR SULFATE [Suspect]
     Indication: HIV INFECTION

REACTIONS (4)
  - BUNDLE BRANCH BLOCK LEFT [None]
  - EYELID PTOSIS [None]
  - LIPODYSTROPHY ACQUIRED [None]
  - SUPRAVENTRICULAR TACHYCARDIA [None]
